FAERS Safety Report 17531451 (Version 2)
Quarter: 2020Q3

REPORT INFORMATION
  Report Type: Spontaneous
  Country: US (occurrence: US)
  Receive Date: 20200311
  Receipt Date: 20200721
  Transmission Date: 20201102
  Serious: No
  Sender: FDA-Public Use
  Company Number: US-INCYTE CORPORATION-2019IN008355

PATIENT

DRUGS (2)
  1. JAKAFI [Suspect]
     Active Substance: RUXOLITINIB
     Dosage: 20 MILLIGRAM, BID
     Route: 048
     Dates: start: 20190729
  2. JAKAFI [Suspect]
     Active Substance: RUXOLITINIB
     Indication: MYELOFIBROSIS
     Dosage: 20 MILLIGRAM, BID
     Route: 048
     Dates: start: 20190729

REACTIONS (7)
  - Rash [Recovering/Resolving]
  - Blood count abnormal [Recovering/Resolving]
  - Anxiety [Unknown]
  - Emotional disorder [Unknown]
  - Heart rate irregular [Unknown]
  - Dyspnoea [Recovering/Resolving]
  - Fatigue [Recovering/Resolving]
